FAERS Safety Report 23601393 (Version 1)
Quarter: 2024Q1

REPORT INFORMATION
  Report Type: Spontaneous
  Country: US (occurrence: US)
  Receive Date: 20240306
  Receipt Date: 20240306
  Transmission Date: 20240410
  Serious: No
  Sender: FDA-Public Use
  Company Number: US-SANDOZ-SDZ2023US008537

PATIENT
  Age: 78 Year
  Sex: Female

DRUGS (2)
  1. ALBUTEROL SULFATE [Suspect]
     Active Substance: ALBUTEROL SULFATE
     Dosage: UNK
     Route: 055
  2. ALBUTEROL SULFATE [Suspect]
     Active Substance: ALBUTEROL SULFATE
     Indication: Chronic obstructive pulmonary disease
     Dosage: 90MCG/DOS, 2 INHALATIONS,4 TIMES PER DAY
     Route: 055
     Dates: start: 20230620

REACTIONS (5)
  - Incorrect dose administered [Unknown]
  - Product dose omission issue [Unknown]
  - Off label use [Unknown]
  - Product use complaint [Unknown]
  - Drug delivery system issue [Unknown]

NARRATIVE: CASE EVENT DATE: 20230620
